FAERS Safety Report 14695584 (Version 2)
Quarter: 2018Q4

REPORT INFORMATION
  Report Type: Report from Study
  Country: US (occurrence: US)
  Receive Date: 20180329
  Receipt Date: 20181123
  Transmission Date: 20190204
  Serious: Yes (Other)
  Sender: FDA-Public Use
  Company Number: PHHY2017US121722

PATIENT
  Age: 34 Year
  Sex: Female

DRUGS (2)
  1. GILENYA [Suspect]
     Active Substance: FINGOLIMOD HYDROCHLORIDE
     Indication: MULTIPLE SCLEROSIS
     Dosage: UNK, QD
     Route: 048
  2. OMEGA 3 [Concomitant]
     Active Substance: OMEGA-3 FATTY ACIDS
     Indication: SUPPLEMENTATION THERAPY
     Dosage: UNK
     Route: 065
     Dates: start: 20180223

REACTIONS (18)
  - Lymphocyte count decreased [Unknown]
  - Low density lipoprotein increased [Unknown]
  - Hot flush [Unknown]
  - Hyperglycaemia [Unknown]
  - Muscle spasms [Unknown]
  - Alanine aminotransferase increased [Unknown]
  - Urinary tract disorder [Unknown]
  - Sleep disorder [Unknown]
  - Sleep apnoea syndrome [Unknown]
  - Swelling face [Unknown]
  - Fatigue [Unknown]
  - Type 2 diabetes mellitus [Unknown]
  - Blood alkaline phosphatase increased [Unknown]
  - Temperature intolerance [Unknown]
  - Central nervous system lesion [Unknown]
  - Gamma-glutamyltransferase increased [Unknown]
  - Facial paralysis [Unknown]
  - Anxiety [Recovered/Resolved]

NARRATIVE: CASE EVENT DATE: 20170611
